FAERS Safety Report 25582195 (Version 2)
Quarter: 2025Q3

REPORT INFORMATION
  Report Type: Report from Study
  Country: US (occurrence: US)
  Receive Date: 20250719
  Receipt Date: 20250724
  Transmission Date: 20251020
  Serious: No
  Sender: IPSEN BIOPHARMACEUTICALS, INC.
  Company Number: US-IPSEN Group, Research and Development-2025-17116

PATIENT
  Age: 13 Year
  Sex: Male
  Weight: 50.7 kg

DRUGS (1)
  1. BYLVAY [Suspect]
     Active Substance: ODEVIXIBAT
     Indication: Progressive familial intrahepatic cholestasis
     Dates: start: 20250501

REACTIONS (1)
  - Bile acids increased [Unknown]

NARRATIVE: CASE EVENT DATE: 20250620
